FAERS Safety Report 7561380-1 (Version None)
Quarter: 2011Q2

REPORT INFORMATION
  Report Type: 
  Country: None (occurrence: None)
  Receive Date: 20110621
  Receipt Date: 20110106
  Transmission Date: 20111010
  Serious: No
  Sender: FDA-Public Use
  Company Number: US-ASTRAZENECA-2010SE57514

PATIENT
  Age: 20600 Day
  Sex: Male
  Weight: 77.1 kg

DRUGS (3)
  1. PULMICORT FLEXHALER [Suspect]
     Route: 055
  2. PULMICORT FLEXHALER [Suspect]
     Indication: CHRONIC OBSTRUCTIVE PULMONARY DISEASE
     Dosage: 1 PUFF DAILY,
     Route: 055
     Dates: start: 20101130, end: 20100101
  3. BUPROPION HCL [Concomitant]

REACTIONS (1)
  - DYSPNOEA [None]
